FAERS Safety Report 20128236 (Version 1)
Quarter: 2021Q4

REPORT INFORMATION
  Report Type: Spontaneous
  Country: US (occurrence: US)
  Receive Date: 20211129
  Receipt Date: 20211129
  Transmission Date: 20220303
  Serious: Yes (Other)
  Sender: FDA-Public Use
  Company Number: US-SUN PHARMACEUTICAL INDUSTRIES LTD-2021R1-319175

PATIENT
  Age: 47 Year
  Sex: Female

DRUGS (2)
  1. DEXAMETHASONE [Suspect]
     Active Substance: DEXAMETHASONE
     Indication: Astrocytoma, low grade
     Dosage: 4 MILLIGRAM, BID
     Route: 048
  2. DEXAMETHASONE [Suspect]
     Active Substance: DEXAMETHASONE
     Dosage: 2 MILLIGRAM, BID
     Route: 048

REACTIONS (4)
  - Mania [Unknown]
  - Increased appetite [Unknown]
  - Weight increased [Unknown]
  - Irritability [Unknown]
